FAERS Safety Report 4831923-7 (Version None)
Quarter: 2005Q4

REPORT INFORMATION
  Report Type: 
  Country: None (occurrence: None)
  Receive Date: 20051118
  Receipt Date: 20050607
  Transmission Date: 20060501
  Serious: Yes (Hospitalization)
  Sender: FDA-Public Use
  Company Number: US-KINGPHARMUSA00001-K200500775

PATIENT
  Age: 58 Year
  Sex: Female

DRUGS (5)
  1. ALTACE [Suspect]
     Dosage: 2.5 MG, QD
     Route: 048
     Dates: start: 20050311, end: 20050420
  2. ALDACTONE [Concomitant]
     Dosage: 75 MG, QD
     Route: 048
     Dates: start: 20041115, end: 20050425
  3. IMUREL [Concomitant]
     Dosage: 50 MG, QD
     Route: 048
     Dates: start: 19920101, end: 20050425
  4. TRASICOR [Concomitant]
     Dosage: 80 MG, QD
     Route: 048
     Dates: start: 20040415
  5. NEORAL [Concomitant]
     Dosage: 150 MG, QD
     Route: 048
     Dates: start: 19920101

REACTIONS (5)
  - AUTOIMMUNE HEPATITIS [None]
  - COUGH [None]
  - HEPATITIS [None]
  - LIVER TRANSPLANT REJECTION [None]
  - TRANSAMINASES INCREASED [None]
